FAERS Safety Report 18347005 (Version 1)
Quarter: 2020Q4

REPORT INFORMATION
  Report Type: Spontaneous
  Country: US (occurrence: US)
  Receive Date: 20201005
  Receipt Date: 20201005
  Transmission Date: 20210114
  Serious: No
  Sender: FDA-Public Use
  Company Number: US-AMGEN-USASP2020160120

PATIENT
  Age: 49 Year
  Sex: Female

DRUGS (7)
  1. OTEZLA [Suspect]
     Active Substance: APREMILAST
     Indication: PSORIASIS
     Dosage: 30 MILLIGRAM, BID
     Route: 048
     Dates: start: 202008
  2. JANUVIA [Concomitant]
     Active Substance: SITAGLIPTIN PHOSPHATE
     Dosage: UNK
  3. WOMEN ^S DAILY FORMULA [Concomitant]
     Active Substance: VITAMINS
     Dosage: UNK
  4. LOVASTATIN. [Concomitant]
     Active Substance: LOVASTATIN
     Dosage: UNK
  5. FOLIC ACID. [Concomitant]
     Active Substance: FOLIC ACID
     Dosage: UNK
  6. HYDROCODONE BITARTRATE. [Concomitant]
     Active Substance: HYDROCODONE BITARTRATE
     Dosage: UNK
  7. ALPRAZOLAM. [Concomitant]
     Active Substance: ALPRAZOLAM
     Dosage: UNK

REACTIONS (1)
  - Product dose omission issue [Unknown]

NARRATIVE: CASE EVENT DATE: 2020
